FAERS Safety Report 8921306 (Version 2)
Quarter: 2012Q4

REPORT INFORMATION
  Report Type: 
  Country: US (occurrence: US)
  Receive Date: 20121121
  Receipt Date: 20121218
  Transmission Date: 20130627
  Serious: Yes (Hospitalization, Other)
  Sender: FDA-Public Use
  Company Number: US-ACTELION-A-NJ2012-69260

PATIENT
  Age: 73 Year
  Sex: Male

DRUGS (3)
  1. TRACLEER [Suspect]
     Indication: PULMONARY HYPERTENSION
     Dosage: UNK
     Route: 048
  2. SILDENAFIL [Concomitant]
  3. COUMADIN [Concomitant]

REACTIONS (9)
  - Cerebral haemorrhage [Unknown]
  - Myocardial infarction [Unknown]
  - Gastrointestinal tube insertion [Unknown]
  - Endotracheal intubation [Unknown]
  - Mechanical ventilation [Unknown]
  - Pulmonary hypertension [Unknown]
  - Syncope [Unknown]
  - Dyspnoea exertional [Unknown]
  - Fall [None]
